FAERS Safety Report 9319396 (Version 1)
Quarter: 2013Q2

REPORT INFORMATION
  Report Type: Spontaneous
  Country: US (occurrence: US)
  Receive Date: 20130530
  Receipt Date: 20130530
  Transmission Date: 20140414
  Serious: No
  Sender: FDA-Public Use
  Company Number: US-GLAXOSMITHKLINE-A0875993A

PATIENT
  Age: 44 Year
  Sex: Female
  Weight: 77.2 kg

DRUGS (8)
  1. FLOLAN [Suspect]
     Indication: PULMONARY ARTERIAL HYPERTENSION
     Dosage: 37NGKM UNKNOWN
     Route: 042
     Dates: start: 20080926
  2. ZOCOR [Concomitant]
     Dosage: 40MG PER DAY
     Route: 048
  3. REVATIO [Concomitant]
     Dosage: 20MG THREE TIMES PER DAY
     Route: 048
  4. ALBUTEROL [Concomitant]
     Dosage: 90MCG AS REQUIRED
     Route: 055
  5. COUMADIN [Concomitant]
     Route: 048
  6. LASIX [Concomitant]
     Dosage: 40MG IN THE MORNING
     Route: 048
  7. SPIRONOLACTONE [Concomitant]
     Dosage: 25MG PER DAY
     Route: 048
  8. IMODIUM [Concomitant]
     Dosage: 2MG AS REQUIRED
     Route: 048

REACTIONS (11)
  - Sensitivity of teeth [Not Recovered/Not Resolved]
  - Eating disorder [Not Recovered/Not Resolved]
  - Pain in extremity [Not Recovered/Not Resolved]
  - Diarrhoea [Not Recovered/Not Resolved]
  - Flushing [Not Recovered/Not Resolved]
  - Nausea [Not Recovered/Not Resolved]
  - Rash [Not Recovered/Not Resolved]
  - Weight decreased [Unknown]
  - Insomnia [Unknown]
  - Fatigue [Unknown]
  - Retching [Unknown]
